FAERS Safety Report 10333346 (Version 1)
Quarter: 2014Q3

REPORT INFORMATION
  Report Type: Spontaneous
  Country: JP (occurrence: JP)
  Receive Date: 20140722
  Receipt Date: 20140722
  Transmission Date: 20150326
  Serious: No
  Sender: FDA-Public Use
  Company Number: PHHY2012JP132652

PATIENT
  Sex: Female

DRUGS (4)
  1. TASIGNA [Suspect]
     Active Substance: NILOTINIB
     Dosage: 150 MG, QOD
  2. TASIGNA [Suspect]
     Active Substance: NILOTINIB
     Indication: CHRONIC MYELOID LEUKAEMIA
     Dosage: UNK
     Dates: start: 20110823
  3. TASIGNA [Suspect]
     Active Substance: NILOTINIB
     Dosage: 600 MG PER DAY
  4. DASATINIB [Suspect]
     Active Substance: DASATINIB
     Dosage: 70 MG
     Dates: end: 20110823

REACTIONS (2)
  - Vomiting [Unknown]
  - Headache [Unknown]
